FAERS Safety Report 13613382 (Version 1)
Quarter: 2017Q2

REPORT INFORMATION
  Report Type: Spontaneous
  Country: US (occurrence: US)
  Receive Date: 20170605
  Receipt Date: 20170605
  Transmission Date: 20170830
  Serious: No
  Sender: FDA-Public Use
  Company Number: US-ACTELION-A-US2017-154685

PATIENT
  Age: 66 Year
  Sex: Female
  Weight: 55.78 kg

DRUGS (1)
  1. OPSUMIT [Suspect]
     Active Substance: MACITENTAN
     Indication: PULMONARY ARTERIAL HYPERTENSION
     Dosage: 10 MG, QD
     Route: 048
     Dates: start: 2014

REACTIONS (7)
  - Nasal congestion [Unknown]
  - Contusion [Unknown]
  - Skin atrophy [Unknown]
  - Tympanic membrane perforation [Unknown]
  - Condition aggravated [Unknown]
  - Viral upper respiratory tract infection [Unknown]
  - Sinusitis [Unknown]

NARRATIVE: CASE EVENT DATE: 2015
